FAERS Safety Report 9901151 (Version 3)
Quarter: 2014Q1

REPORT INFORMATION
  Report Type: Spontaneous
  Country: US (occurrence: US)
  Receive Date: 20140217
  Receipt Date: 20140328
  Transmission Date: 20141002
  Serious: Yes (Other)
  Sender: FDA-Public Use
  Company Number: US-PFIZER INC-2014044861

PATIENT
  Age: 68 Year
  Sex: Female
  Weight: 127.89 kg

DRUGS (8)
  1. LYRICA [Suspect]
     Indication: NEUROPATHY PERIPHERAL
     Dosage: 75 MG, 5X/DAY
     Route: 048
     Dates: start: 201208
  2. LYRICA [Suspect]
     Dosage: 75 MG, 2X/DAY
     Route: 048
  3. LOTREL [Concomitant]
     Indication: CARDIAC DISORDER
     Dosage: UNK
  4. FENTANYL [Concomitant]
     Indication: PAIN
     Dosage: 100 UG, Q 48 HRS
     Route: 062
  5. PREMARIN [Concomitant]
     Dosage: UNK
  6. SYNTHROID [Concomitant]
     Dosage: UNK
  7. LASIX [Concomitant]
     Dosage: UNK
  8. PERCOCET [Concomitant]
     Dosage: UNK

REACTIONS (10)
  - Weight increased [Unknown]
  - Speech disorder [Unknown]
  - Somnolence [Unknown]
  - Local swelling [Unknown]
  - Drug withdrawal syndrome [Unknown]
  - Tremor [Unknown]
  - Nausea [Unknown]
  - Vomiting [Unknown]
  - Intentional drug misuse [Unknown]
  - Fatigue [Recovered/Resolved]
